FAERS Safety Report 9795538 (Version 1)
Quarter: 2014Q1

REPORT INFORMATION
  Report Type: Spontaneous
  Country: US (occurrence: US)
  Receive Date: 20140103
  Receipt Date: 20140103
  Transmission Date: 20141002
  Serious: Yes (Hospitalization)
  Sender: FDA-Public Use
  Company Number: US-BAYER-2014-000697

PATIENT
  Age: 23 Year
  Sex: Female
  Weight: 53.97 kg

DRUGS (4)
  1. YAZ [Suspect]
  2. ADVIL [Concomitant]
     Dosage: UNK, PRN
  3. PERCOCET [Concomitant]
     Dosage: UNK, PRN
  4. IBUPROFEN [Concomitant]

REACTIONS (1)
  - Pulmonary embolism [None]
